FAERS Safety Report 18031499 (Version 1)
Quarter: 2020Q3

REPORT INFORMATION
  Report Type: Spontaneous
  Country: US (occurrence: US)
  Receive Date: 20200715
  Receipt Date: 20200715
  Transmission Date: 20201103
  Serious: Yes (Death)
  Sender: FDA-Public Use
  Company Number: None

PATIENT
  Age: 81 Year
  Sex: Male
  Weight: 102.06 kg

DRUGS (25)
  1. GABAPENTIN 400 MG [Concomitant]
     Active Substance: GABAPENTIN
     Dates: start: 20191015, end: 20200327
  2. NYSTATIN 100000 UNITS TOPICAL [Concomitant]
     Dates: start: 20141119, end: 20200327
  3. OLOPATADINE 0.1% DROPS [Concomitant]
     Dates: start: 20191015, end: 20200327
  4. SULFAMETHOXAZOLE?TRIMETHOPRIM 800?160 MG [Concomitant]
     Dates: start: 20171219, end: 20200327
  5. TRIAMCINOLONE 0.1% TOPICAL [Concomitant]
     Dates: start: 20110423, end: 20200327
  6. ARTIFICIAL TEAR 0.1?0.3% [Concomitant]
     Dates: start: 20140217, end: 20200327
  7. LIDODERM 5% PATCH [Concomitant]
     Dates: start: 20130308, end: 20200327
  8. LOSARTAN?HCTZ 100?12.5 MG [Concomitant]
     Dates: start: 20191015, end: 20200327
  9. TUMS 500 MG [Concomitant]
     Dates: start: 20071106, end: 20200327
  10. HYDROCODONE?APAP 10?325 MG [Concomitant]
     Dates: start: 20120118, end: 20200327
  11. SALINE FLUSH [Concomitant]
     Active Substance: SODIUM CHLORIDE
     Dates: start: 20191203, end: 20200327
  12. ALPHANINE SD [Suspect]
     Active Substance: COAGULATION FACTOR IX HUMAN
     Indication: FACTOR IX DEFICIENCY
     Route: 042
     Dates: start: 20200124, end: 20200327
  13. BETAMETHASONE VALERATE 0.1% TOPICAL [Concomitant]
     Dates: start: 20130308, end: 20200327
  14. DICLOFENAC SODIUM 3% TOPICAL [Concomitant]
     Dates: start: 20191015, end: 20200327
  15. GLIMEPIRIDE 2 MG [Concomitant]
     Active Substance: GLIMEPIRIDE
     Dates: start: 20170809, end: 20200327
  16. CLOTRIMAZOLE?BETAMETHASONE 1?0.05% TOPICAL [Concomitant]
     Dates: start: 20191015, end: 20200327
  17. GABAPENTIN 100 MG [Concomitant]
     Active Substance: GABAPENTIN
     Dates: start: 20191015, end: 20200327
  18. TIZANIDINE HCL 4 MG [Concomitant]
     Dates: start: 20191015, end: 20200327
  19. URGENTQR PACKAGE [Concomitant]
     Dates: start: 20130201, end: 20200327
  20. ALPHANINE SD [Suspect]
     Active Substance: COAGULATION FACTOR IX HUMAN
     Indication: FACTOR IX DEFICIENCY
     Route: 042
     Dates: start: 20200124, end: 20200327
  21. LOTRIMIN ULTRA 1% TOPICAL [Concomitant]
     Dates: start: 20130308, end: 20200327
  22. MIRALAX [Concomitant]
     Active Substance: POLYETHYLENE GLYCOL 3350
     Dates: start: 20130831, end: 20200327
  23. POTASSIUM CHLORIDE ER 10 MEQ [Concomitant]
     Dates: start: 20191015, end: 20200327
  24. ATENOLOL 25 MG [Concomitant]
     Active Substance: ATENOLOL
     Dates: start: 20011206, end: 20200327
  25. CELEBREX [Concomitant]
     Active Substance: CELECOXIB
     Dates: start: 20180619, end: 20200327

REACTIONS (3)
  - Cellulitis [None]
  - Fall [None]
  - Product supply issue [None]

NARRATIVE: CASE EVENT DATE: 20200327
